FAERS Safety Report 17661534 (Version 1)
Quarter: 2020Q2

REPORT INFORMATION
  Report Type: Spontaneous
  Country: US (occurrence: US)
  Receive Date: 20200413
  Receipt Date: 20200413
  Transmission Date: 20200713
  Serious: Yes (Hospitalization)
  Sender: FDA-Public Use
  Company Number: None

PATIENT
  Sex: Female

DRUGS (1)
  1. CAPECITABINE. [Suspect]
     Active Substance: CAPECITABINE
     Indication: BREAST CANCER FEMALE
     Route: 048
     Dates: start: 20191025

REACTIONS (12)
  - Fatigue [None]
  - Seroma [None]
  - Diarrhoea [None]
  - Pyrexia [None]
  - Fibrosis [None]
  - Lymphadenopathy [None]
  - Erythema [None]
  - Stress [None]
  - Neuropathy peripheral [None]
  - Peripheral swelling [None]
  - Therapy interrupted [None]
  - Nausea [None]
